FAERS Safety Report 9414099 (Version 2)
Quarter: 2013Q3

REPORT INFORMATION
  Report Type: Spontaneous
  Country: US (occurrence: US)
  Receive Date: 20130723
  Receipt Date: 20130807
  Transmission Date: 20140515
  Serious: Yes (Other)
  Sender: FDA-Public Use
  Company Number: US-PFIZER INC-2013212739

PATIENT
  Age: 45 Year
  Sex: Female
  Weight: 119 kg

DRUGS (5)
  1. LYRICA [Suspect]
     Dosage: 75 MG, 2X/DAY
  2. NEURONTIN [Suspect]
     Indication: DIABETIC NEUROPATHY
     Dosage: 600 MG/DAY
  3. ATORVASTATIN CALCIUM [Concomitant]
     Indication: BLOOD CHOLESTEROL ABNORMAL
     Dosage: 2 MG/DAY
  4. AMITRIPTYLINE [Concomitant]
     Indication: DEPRESSION
     Dosage: 25 MG/DAY
  5. LORTAB [Concomitant]
     Indication: FIBROMYALGIA
     Dosage: 7.5 MG/DAY

REACTIONS (7)
  - Loss of consciousness [Unknown]
  - Blood glucose increased [Recovering/Resolving]
  - Fall [Recovering/Resolving]
  - Swelling face [Recovering/Resolving]
  - Lip swelling [Recovering/Resolving]
  - Head injury [Recovering/Resolving]
  - Lip injury [Unknown]
